FAERS Safety Report 6530216-X (Version None)
Quarter: 2010Q1

REPORT INFORMATION
  Report Type: 
  Country: None (occurrence: None)
  Receive Date: 20100107
  Receipt Date: 20091230
  Transmission Date: 20100710
  Serious: Yes (Other)
  Sender: FDA-Public Use
  Company Number: BR-ABBOTT-09P-020-0617115-00

PATIENT
  Sex: Male
  Weight: 50 kg

DRUGS (2)
  1. HUMIRA [Suspect]
     Indication: ANKYLOSING SPONDYLITIS
     Route: 058
     Dates: start: 20090722
  2. PREDNISOLONE / PHENYLBUTAZONE / FAMOTIDINE [Concomitant]
     Indication: ANKYLOSING SPONDYLITIS
     Dosage: 3MG/170MG/20MG
     Route: 048

REACTIONS (2)
  - BONE EROSION [None]
  - WEIGHT INCREASED [None]
